FAERS Safety Report 5899683-9 (Version None)
Quarter: 2008Q3

REPORT INFORMATION
  Report Type: 
  Country: None (occurrence: None)
  Receive Date: 20080919
  Receipt Date: 20080616
  Transmission Date: 20090109
  Serious: No
  Sender: FDA-Public Use
  Company Number: US-WYE-H04152008

PATIENT
  Age: 81 Year
  Sex: Male
  Weight: 64.92 kg

DRUGS (2)
  1. PRISTIQ [Suspect]
     Indication: ANXIETY
     Dosage: 50 MG 1X PER 1 DAY, ORAL
     Route: 048
     Dates: start: 20080515
  2. KLONOPIN [Concomitant]

REACTIONS (2)
  - ABDOMINAL DISCOMFORT [None]
  - DECREASED APPETITE [None]
